FAERS Safety Report 13610612 (Version 1)
Quarter: 2017Q2

REPORT INFORMATION
  Report Type: Spontaneous
  Country: US (occurrence: US)
  Receive Date: 20170530
  Receipt Date: 20170530
  Transmission Date: 20170830
  Serious: No
  Sender: FDA-Public Use
  Company Number: None

PATIENT
  Sex: Female

DRUGS (2)
  1. HUMIRA [Suspect]
     Active Substance: ADALIMUMAB
     Indication: EOSINOPHILIC COLITIS
     Dosage: DOSAGE - 40MG/0.8ML?FREQUENCY - Q2 WEEKS
  2. HUMIRA [Suspect]
     Active Substance: ADALIMUMAB
     Indication: RHEUMATOID ARTHRITIS
     Dosage: DOSAGE - 40MG/0.8ML?FREQUENCY - Q2 WEEKS

REACTIONS (1)
  - Tremor [None]
